FAERS Safety Report 9486919 (Version 1)
Quarter: 2013Q3

REPORT INFORMATION
  Report Type: Spontaneous
  Country: US (occurrence: None)
  Receive Date: 20130827
  Receipt Date: 20130827
  Transmission Date: 20140515
  Serious: Yes (Hospitalization)
  Sender: FDA-Public Use
  Company Number: 2013080134

PATIENT
  Age: 79 Year
  Sex: Female
  Weight: 40.82 kg

DRUGS (1)
  1. FEOSOL [Suspect]
     Indication: BLOOD COUNT ABNORMAL
     Route: 048
     Dates: start: 2006, end: 2010

REACTIONS (2)
  - Abdominal pain upper [None]
  - Constipation [None]
